FAERS Safety Report 7747261-9 (Version None)
Quarter: 2011Q3

REPORT INFORMATION
  Report Type: 
  Country: None (occurrence: None)
  Receive Date: 20110913
  Receipt Date: 20110907
  Transmission Date: 20111222
  Serious: Yes (Death, Other)
  Sender: FDA-Public Use
  Company Number: JP-PFIZER INC-2011212398

PATIENT
  Age: 76 Year
  Sex: Male
  Weight: 68.9 kg

DRUGS (2)
  1. DIOVAN [Concomitant]
     Dosage: UNK
     Route: 048
     Dates: end: 20110813
  2. ATORVASTATIN CALCIUM [Suspect]
     Indication: HYPERCHOLESTEROLAEMIA
     Dosage: 10 MG, 1X/DAY
     Route: 048
     Dates: start: 20110302, end: 20110813

REACTIONS (1)
  - ACUTE MYOCARDIAL INFARCTION [None]
